FAERS Safety Report 8819070 (Version 1)
Quarter: 2012Q4

REPORT INFORMATION
  Report Type: Report from Study
  Country: CA (occurrence: CA)
  Receive Date: 20121001
  Receipt Date: 20121001
  Transmission Date: 20130627
  Serious: Yes (Other)
  Sender: FDA-Public Use
  Company Number: CA-JNJFOC-20120910347

PATIENT
  Sex: Male
  Weight: 82 kg

DRUGS (3)
  1. REMICADE [Suspect]
     Indication: ANKYLOSING SPONDYLITIS
     Route: 042
     Dates: start: 20120221
  2. ADVAIR [Concomitant]
     Route: 055
  3. TECTA [Concomitant]
     Route: 048

REACTIONS (2)
  - Cellulitis [Recovered/Resolved]
  - Fungal infection [Unknown]
